FAERS Safety Report 21146446 (Version 1)
Quarter: 2022Q3

REPORT INFORMATION
  Report Type: Spontaneous
  Country: US (occurrence: US)
  Receive Date: 20220729
  Receipt Date: 20220729
  Transmission Date: 20221027
  Serious: No
  Sender: FDA-Public Use
  Company Number: US-AMGEN-USASP2022129322

PATIENT
  Age: 49 Year
  Sex: Male

DRUGS (2)
  1. OTEZLA [Suspect]
     Active Substance: APREMILAST
     Indication: Psoriasis
     Dosage: 30 MILLIGRAM, QD
     Route: 048
     Dates: start: 20171010
  2. INVOKANA [Concomitant]
     Active Substance: CANAGLIFLOZIN
     Dosage: 100 MILLIGRAM

REACTIONS (2)
  - Diarrhoea [Not Recovered/Not Resolved]
  - Off label use [Unknown]

NARRATIVE: CASE EVENT DATE: 20171010
